FAERS Safety Report 11247858 (Version 1)
Quarter: 2015Q3

REPORT INFORMATION
  Report Type: Spontaneous
  Country: US (occurrence: US)
  Receive Date: 20150708
  Receipt Date: 20150708
  Transmission Date: 20151125
  Serious: Yes (Other)
  Sender: FDA-Public Use
  Company Number: US-PFIZER INC-2015222878

PATIENT
  Age: 58 Year
  Sex: Male
  Weight: 74 kg

DRUGS (2)
  1. DIVALPROEX [Concomitant]
     Active Substance: DIVALPROEX SODIUM
     Dosage: 2X/DAY (500MG, THREE IN THE MORNING AND FOUR IN THE EVENING)
     Dates: start: 1995
  2. DILANTIN [Suspect]
     Active Substance: PHENYTOIN
     Indication: EPILEPSY
     Dosage: 200 MG, 2X/DAY (100MG CAPSULES, TWO IN THE MORNING AND TWO IN THE EVENING)
     Dates: start: 1968

REACTIONS (3)
  - Muscle rupture [Unknown]
  - Musculoskeletal injury [Unknown]
  - Rotator cuff syndrome [Unknown]

NARRATIVE: CASE EVENT DATE: 201411
